FAERS Safety Report 5285121-6 (Version None)
Quarter: 2007Q2

REPORT INFORMATION
  Report Type: 
  Country: None (occurrence: None)
  Receive Date: 20070403
  Receipt Date: 20070330
  Transmission Date: 20071010
  Serious: Yes (Other)
  Sender: FDA-Public Use
  Company Number: 2006UW10957

PATIENT
  Age: 604 Month
  Sex: Male
  Weight: 77.3 kg

DRUGS (8)
  1. SEROQUEL [Suspect]
     Indication: BIPOLAR DISORDER
     Dosage: 200MG - 50MG- 25MG
     Route: 048
     Dates: start: 20050101, end: 20050501
  2. ZYPREXA [Suspect]
     Dates: start: 19900101
  3. HALDOL [Suspect]
     Dates: start: 19970101
  4. THORAZINE [Suspect]
     Dates: start: 19870101
  5. GEODON [Concomitant]
     Dates: start: 20051212, end: 20051221
  6. RISPERDAL [Concomitant]
     Dates: start: 20050506
  7. TRILAFON [Concomitant]
     Dates: start: 19800101, end: 19910601
  8. MARIJUANA [Concomitant]
     Dates: start: 19800101

REACTIONS (2)
  - DIABETES MELLITUS [None]
  - PANCREATITIS [None]
